FAERS Safety Report 4359821-6 (Version None)
Quarter: 2004Q2

REPORT INFORMATION
  Report Type: 
  Country: None (occurrence: None)
  Receive Date: 20040514
  Receipt Date: 20040504
  Transmission Date: 20050107
  Serious: Yes (Death)
  Sender: FDA-Public Use
  Company Number: FR-JNJFOC-20040303693

PATIENT
  Age: 72 Year
  Sex: Female
  Weight: 50 kg

DRUGS (8)
  1. RISPERDAL [Suspect]
     Indication: DELUSION
     Dosage: SEE IMAGE
     Route: 048
     Dates: start: 20040309, end: 20040310
  2. RISPERDAL [Suspect]
     Indication: PSYCHOTIC DISORDER
     Dosage: SEE IMAGE
     Route: 048
     Dates: start: 20040309, end: 20040310
  3. RISPERDAL [Suspect]
     Indication: DELUSION
     Dosage: SEE IMAGE
     Route: 048
     Dates: start: 20040311, end: 20040311
  4. RISPERDAL [Suspect]
     Indication: PSYCHOTIC DISORDER
     Dosage: SEE IMAGE
     Route: 048
     Dates: start: 20040311, end: 20040311
  5. RISPERDAL CONSTA [Suspect]
     Indication: PSYCHOTIC DISORDER
     Dosage: 50 MG, 1 IN 14 DAY, INTRA-MUSCULAR
     Route: 030
     Dates: start: 20040310, end: 20040314
  6. PAROXETINE HCL [Concomitant]
  7. PRAZEPAM [Concomitant]
  8. DUPHALAC [Concomitant]

REACTIONS (12)
  - ATRIOVENTRICULAR BLOCK SECOND DEGREE [None]
  - BALANCE DISORDER [None]
  - BRADYCARDIA [None]
  - DRUG INTERACTION [None]
  - HYPOTENSION [None]
  - HYPOTHERMIA [None]
  - INCOHERENT [None]
  - LUNG DISORDER [None]
  - OVERDOSE [None]
  - PANCYTOPENIA [None]
  - SEPTIC SHOCK [None]
  - STAPHYLOCOCCAL INFECTION [None]
